FAERS Safety Report 4690116-7 (Version None)
Quarter: 2005Q2

REPORT INFORMATION
  Report Type: 
  Country: None (occurrence: None)
  Receive Date: 20050613
  Receipt Date: 20050528
  Transmission Date: 20051028
  Serious: Yes (Hospitalization)
  Sender: FDA-Public Use
  Company Number: DE-2005-009092

PATIENT

DRUGS (1)
  1. BETAFERON (BETAFERON (SH Y 579E) (INTERFERON BETA-1B) INJECTION, 250UG [Suspect]
     Indication: VIRAL MYOCARDITIS
     Dosage: POST  TREATMENT PHASE

REACTIONS (3)
  - ACCIDENT [None]
  - FEMORAL NECK FRACTURE [None]
  - TRAUMATIC FRACTURE [None]
